FAERS Safety Report 24843097 (Version 1)
Quarter: 2025Q1

REPORT INFORMATION
  Report Type: Report from Study
  Country: US (occurrence: US)
  Receive Date: 20250115
  Receipt Date: 20250115
  Transmission Date: 20250409
  Serious: No
  Sender: HRA PHARMA
  Company Number: US-ORG100014127-2024000330

PATIENT
  Age: 61 Year
  Sex: Female

DRUGS (13)
  1. LYSODREN [Suspect]
     Active Substance: MITOTANE
     Indication: Adrenal gland cancer
     Dosage: 500 MG; 1 TABLET EVERY 12 HOURS
     Route: 048
     Dates: start: 20241016
  2. LYSODREN [Suspect]
     Active Substance: MITOTANE
     Indication: Adrenal gland cancer
     Dosage: 500 MG; 3 BID
     Route: 048
  3. LYSODREN [Suspect]
     Active Substance: MITOTANE
     Indication: Adrenal gland cancer
     Dosage: 500 MG; 3 BID
     Route: 048
  4. LYSODREN [Suspect]
     Active Substance: MITOTANE
     Indication: Adrenal gland cancer
     Dosage: 3 TABLETS EVERY TWELVE HOURS
     Route: 048
  5. ACETAMIN TAB 500MG [Concomitant]
     Indication: Product used for unknown indication
  6. ARTIFICIAL SOL TEARS [Concomitant]
     Indication: Product used for unknown indication
  7. CYCLOBENZAPR TAB 10MG [Concomitant]
     Indication: Product used for unknown indication
  8. CYCLOSPORINE EMU 0.05% OP [Concomitant]
     Indication: Product used for unknown indication
  9. DOCUSATE SOD CAP 100MG [Concomitant]
     Indication: Product used for unknown indication
  10. GABAPENTIN CAP 100MG [Concomitant]
     Indication: Product used for unknown indication
  11. IBUPROFEN TAB 400MG [Concomitant]
     Indication: Product used for unknown indication
  12. ONDANSETRON [Concomitant]
     Active Substance: ONDANSETRON
     Indication: Product used for unknown indication
  13. PANTOPRAZOLE TAB 40MG [Concomitant]
     Indication: Product used for unknown indication

REACTIONS (6)
  - Dyspnoea [Recovering/Resolving]
  - Diarrhoea [Not Recovered/Not Resolved]
  - Nausea [Not Recovered/Not Resolved]
  - Decreased appetite [Not Recovered/Not Resolved]
  - Vomiting [Recovered/Resolved]
  - Product use complaint [Unknown]

NARRATIVE: CASE EVENT DATE: 20241025
